FAERS Safety Report 21950823 (Version 3)
Quarter: 2023Q1

REPORT INFORMATION
  Report Type: Spontaneous
  Country: LT (occurrence: LT)
  Receive Date: 20230203
  Receipt Date: 20230217
  Transmission Date: 20230417
  Serious: Yes (Life-Threatening, Hospitalization, Other)
  Sender: FDA-Public Use
  Company Number: LT-MYLANLABS-2022M1148942

PATIENT
  Age: 47 Year
  Sex: Female

DRUGS (15)
  1. CLOZAPINE [Suspect]
     Active Substance: CLOZAPINE
     Indication: Schizophrenia
     Dosage: 800 MILLIGRAM, QD
     Route: 065
  2. QUETIAPINE [Suspect]
     Active Substance: QUETIAPINE
     Indication: Schizophrenia
     Dosage: 800 MILLIGRAM, QD
     Route: 065
  3. QUETIAPINE [Suspect]
     Active Substance: QUETIAPINE
     Indication: Mania
  4. DIAZEPAM [Suspect]
     Active Substance: DIAZEPAM
     Indication: Anxiety
     Dosage: 20 MILLIGRAM, QD
     Route: 065
  5. DIAZEPAM [Suspect]
     Active Substance: DIAZEPAM
     Indication: Seizure
  6. DIAZEPAM [Suspect]
     Active Substance: DIAZEPAM
     Indication: Agitation
  7. CLORAZEPATE DIPOTASSIUM [Suspect]
     Active Substance: CLORAZEPATE DIPOTASSIUM
     Indication: Generalised anxiety disorder
     Dosage: 20 MILLIGRAM, QD(UP TO 20 MG/DAY)
     Route: 065
  8. CLORAZEPATE DIPOTASSIUM [Suspect]
     Active Substance: CLORAZEPATE DIPOTASSIUM
     Indication: Schizophrenia
     Dosage: 20 MILLIGRAM, QD(UP TO 20 MG/DAY)
     Route: 065
  9. CLORAZEPATE DIPOTASSIUM [Suspect]
     Active Substance: CLORAZEPATE DIPOTASSIUM
     Indication: Mania
     Dosage: 20 MILLIGRAM, QD(UP TO 20 MG/DAY)
     Route: 065
  10. HALOPERIDOL [Suspect]
     Active Substance: HALOPERIDOL
     Indication: Delirium
     Dosage: UNK
     Route: 065
  11. HALOPERIDOL [Suspect]
     Active Substance: HALOPERIDOL
     Indication: Agitation
  12. HALOPERIDOL [Suspect]
     Active Substance: HALOPERIDOL
     Indication: Psychomotor hyperactivity
  13. DEXAMETHASONE [Suspect]
     Active Substance: DEXAMETHASONE
     Indication: Product used for unknown indication
     Dosage: UNK
     Route: 065
  14. AMITRIPTYLINE [Suspect]
     Active Substance: AMITRIPTYLINE
     Indication: Depression
     Dosage: 50 MILLIGRAM, QD
     Route: 065
  15. AMITRIPTYLINE [Suspect]
     Active Substance: AMITRIPTYLINE
     Indication: Schizophrenia
     Dosage: 50 MILLIGRAM, QD
     Route: 065

REACTIONS (9)
  - Inappropriate antidiuretic hormone secretion [Unknown]
  - Cortisol increased [Unknown]
  - Hyponatraemia [Unknown]
  - Polydipsia [Recovering/Resolving]
  - Drug ineffective [Recovering/Resolving]
  - Abulia [Unknown]
  - Delusion [Unknown]
  - Disturbance in attention [Unknown]
  - Prescribed overdose [Unknown]
